FAERS Safety Report 4376502-3 (Version None)
Quarter: 2004Q2

REPORT INFORMATION
  Report Type: 
  Country: None (occurrence: None)
  Receive Date: 20040614
  Receipt Date: 20040604
  Transmission Date: 20050107
  Serious: Yes (Life-Threatening)
  Sender: FDA-Public Use
  Company Number: 200415699GDDC

PATIENT
  Age: 75 Year
  Sex: Female

DRUGS (4)
  1. FEXOFENADINE HCL [Suspect]
     Indication: URTICARIA
     Route: 048
     Dates: start: 20040427, end: 20040506
  2. BENDROFLUAZIDE [Concomitant]
     Indication: BLOOD PRESSURE
     Route: 048
  3. THYROXINE [Concomitant]
     Indication: THYROID DISORDER
     Route: 048
  4. IRBESARTAN [Concomitant]
     Indication: BLOOD PRESSURE
     Route: 048

REACTIONS (3)
  - FEELING HOT [None]
  - MALAISE [None]
  - PALPITATIONS [None]
